FAERS Safety Report 9196976 (Version 1)
Quarter: 2013Q1

REPORT INFORMATION
  Report Type: Spontaneous
  Country: US (occurrence: None)
  Receive Date: 20120709
  Receipt Date: 20120709
  Transmission Date: 20140127
  Serious: Yes (Other)
  Sender: FDA-Public Use
  Company Number: PHEH2012US000903

PATIENT
  Age: 55 Year
  Sex: Male
  Weight: 97 kg

DRUGS (13)
  1. GLEEVEC [Suspect]
     Indication: CHRONIC MYELOID LEUKAEMIA
     Route: 048
     Dates: start: 20081125
  2. ALTACE (RAMIPRIL) TABLET [Concomitant]
  3. AMBIEN (ZOL[PIDEM TARTRATE) [Concomitant]
  4. ASPIRIN (ACETYLSALICYLIC ACID) [Concomitant]
  5. CLONAZEPAM (CLONAZEPAM) (CLONAZEPAM) [Concomitant]
  6. FLEXERIL (CYCLOBENZAPRINE HYDROCHLORIDE) [Concomitant]
  7. LASIX (FUROSEMIDE) [Concomitant]
  8. LYRICA (PREGABALIN) [Concomitant]
  9. MULTIVITAMIN (VITAMINS NOS) [Concomitant]
  10. NEXIUM (ESOMEPRAZOLE MAGNESIUM) [Concomitant]
  11. OXYCODONE (OXYCODONE) [Concomitant]
  12. TRICOR (FENOFIBRATE) [Concomitant]
  13. WELCHOL (COLESVELAM HYDROCHLORIDE) [Concomitant]

REACTIONS (6)
  - Haematochezia [None]
  - Myalgia [None]
  - Muscle spasms [None]
  - Nausea [None]
  - Weight increased [None]
  - Oedema [None]
